FAERS Safety Report 5223977-3 (Version None)
Quarter: 2007Q1

REPORT INFORMATION
  Report Type: 
  Country: None (occurrence: None)
  Receive Date: 20070130
  Receipt Date: 20070124
  Transmission Date: 20070707
  Serious: Yes (Other)
  Sender: FDA-Public Use
  Company Number: NL-GLAXOSMITHKLINE-B0440944A

PATIENT
  Age: 57 Year
  Sex: Female

DRUGS (3)
  1. BUPROPION HYDROCHLORIDE [Suspect]
     Dates: start: 20021004, end: 20021028
  2. OXAZEPAM [Concomitant]
  3. ZOLPIDEM TARTRATE [Concomitant]
     Dosage: 10MG PER DAY
     Dates: start: 20021025

REACTIONS (5)
  - AFFECT LABILITY [None]
  - AGITATION [None]
  - CRYING [None]
  - DEPRESSION [None]
  - SELF-INJURIOUS IDEATION [None]
